FAERS Safety Report 15719731 (Version 1)
Quarter: 2018Q4

REPORT INFORMATION
  Report Type: Spontaneous
  Country: US (occurrence: US)
  Receive Date: 20181213
  Receipt Date: 20181213
  Transmission Date: 20190205
  Serious: No
  Sender: FDA-Public Use
  Company Number: US-JNJFOC-20181140800

PATIENT
  Age: 83 Year
  Sex: Male
  Weight: 102.06 kg

DRUGS (1)
  1. ZYTIGA [Suspect]
     Active Substance: ABIRATERONE ACETATE
     Indication: PROSTATE CANCER METASTATIC
     Dosage: STRENGTH 500 MG (2 TABLETS)
     Route: 048
     Dates: start: 201807

REACTIONS (1)
  - Mesenteric fibrosis [Not Recovered/Not Resolved]

NARRATIVE: CASE EVENT DATE: 20181120
